FAERS Safety Report 5574490-5 (Version None)
Quarter: 2007Q4

REPORT INFORMATION
  Report Type: 
  Country: None (occurrence: None)
  Receive Date: 20071227
  Receipt Date: 20071212
  Transmission Date: 20080405
  Serious: Yes (Death)
  Sender: FDA-Public Use
  Company Number: JP-ROCHE-537235

PATIENT
  Age: 50 Year
  Sex: Male

DRUGS (1)
  1. RIVOTRIL [Suspect]
     Route: 048

REACTIONS (2)
  - DEATH [None]
  - INTENTIONAL OVERDOSE [None]
